FAERS Safety Report 7769139-7 (Version None)
Quarter: 2011Q3

REPORT INFORMATION
  Report Type: 
  Country: None (occurrence: None)
  Receive Date: 20110922
  Receipt Date: 20110712
  Transmission Date: 20111222
  Serious: No
  Sender: FDA-Public Use
  Company Number: US-ASTRAZENECA-2010SE10195

PATIENT
  Age: 49 Year
  Sex: Male
  Weight: 96.6 kg

DRUGS (21)
  1. SEROQUEL [Suspect]
     Route: 048
     Dates: start: 20060101
  2. SPIRONOLACTONE [Concomitant]
  3. GLIPERIDE [Concomitant]
     Indication: DIABETES MELLITUS
  4. SEROQUEL [Suspect]
     Indication: SLEEP DISORDER
     Route: 048
     Dates: start: 20090801, end: 20100101
  5. GEMFIBROZIL [Concomitant]
     Route: 048
  6. CYMBALTA [Concomitant]
     Indication: DEPRESSION
  7. SEROQUEL [Suspect]
     Route: 048
     Dates: start: 20100101
  8. SEROQUEL [Suspect]
     Route: 048
     Dates: start: 20100101
  9. SEROQUEL [Suspect]
     Route: 048
     Dates: start: 20100101
  10. SEROQUEL [Suspect]
     Route: 048
     Dates: start: 20060101
  11. NIASPAN [Concomitant]
     Route: 048
  12. LISINOPRIL [Concomitant]
     Route: 048
  13. ALPRAZOLAM [Concomitant]
  14. SEROQUEL [Suspect]
     Route: 048
     Dates: start: 20100101
  15. SEROQUEL [Suspect]
     Indication: BIPOLAR I DISORDER
     Route: 048
     Dates: start: 20090801, end: 20100101
  16. SEROQUEL [Suspect]
     Route: 048
     Dates: start: 20100101
  17. SEROQUEL [Suspect]
     Route: 048
     Dates: start: 20060101
  18. METFORMIN [Concomitant]
     Indication: DIABETES MELLITUS
     Route: 048
  19. DEXTROAMPHETAMINE [Concomitant]
     Indication: ATTENTION DEFICIT/HYPERACTIVITY DISORDER
  20. SEROQUEL [Suspect]
     Indication: BIPOLAR DISORDER
     Route: 048
     Dates: start: 20090801, end: 20100101
  21. SEROQUEL [Suspect]
     Route: 048
     Dates: start: 20100101

REACTIONS (11)
  - FEELING ABNORMAL [None]
  - STRESS [None]
  - BLOOD GLUCOSE INCREASED [None]
  - MEMORY IMPAIRMENT [None]
  - TYPE 2 DIABETES MELLITUS [None]
  - VISION BLURRED [None]
  - DEPRESSION [None]
  - BLOOD POTASSIUM INCREASED [None]
  - SOMNOLENCE [None]
  - BLOOD CHOLESTEROL INCREASED [None]
  - BLOOD PRESSURE INCREASED [None]
